FAERS Safety Report 15994508 (Version 1)
Quarter: 2019Q1

REPORT INFORMATION
  Report Type: Spontaneous
  Country: US (occurrence: US)
  Receive Date: 20190222
  Receipt Date: 20190222
  Transmission Date: 20190418
  Serious: No
  Sender: FDA-Public Use
  Company Number: US-INSYS THERAPEUTICS, INC-INS201802-000078

PATIENT
  Sex: Female

DRUGS (2)
  1. SUBSYS [Suspect]
     Active Substance: FENTANYL
     Indication: BREAKTHROUGH PAIN
     Route: 060
  2. FENTORA [Concomitant]
     Active Substance: FENTANYL CITRATE

REACTIONS (3)
  - Accidental exposure to product [Unknown]
  - Product quality issue [Unknown]
  - Paraesthesia [Recovered/Resolved]
